FAERS Safety Report 16175628 (Version 2)
Quarter: 2019Q3

REPORT INFORMATION
  Report Type: Report from Study
  Country: CA (occurrence: CA)
  Receive Date: 20190409
  Receipt Date: 20190723
  Transmission Date: 20191004
  Serious: Yes (Other)
  Sender: FDA-Public Use
  Company Number: CA-INCYTE CORPORATION-2019IN003496

PATIENT

DRUGS (1)
  1. JAKAVI [Suspect]
     Active Substance: RUXOLITINIB
     Indication: MYELOFIBROSIS
     Dosage: 20 MG, BID
     Route: 048
     Dates: start: 20190302

REACTIONS (5)
  - Anaemia [Unknown]
  - Heart rate increased [Unknown]
  - White blood cell count decreased [Unknown]
  - Spleen disorder [Unknown]
  - Platelet count decreased [Unknown]
